FAERS Safety Report 7229444-X (Version None)
Quarter: 2011Q1

REPORT INFORMATION
  Report Type: 
  Country: None (occurrence: None)
  Receive Date: 20110117
  Receipt Date: 20110114
  Transmission Date: 20110831
  Serious: Yes (Death)
  Sender: FDA-Public Use
  Company Number: B0693624A

PATIENT
  Age: 25 Year
  Sex: Male

DRUGS (16)
  1. DARUNAVIR [Suspect]
     Indication: HIV INFECTION
  2. AMIKACIN [Concomitant]
     Indication: ANTIBIOTIC PROPHYLAXIS
     Route: 042
  3. ONDANSETRON [Suspect]
  4. UNKNOWN DRUG [Concomitant]
  5. RITONAVIR [Suspect]
     Indication: HIV INFECTION
  6. FLUCONAZOLE [Suspect]
     Indication: ORAL CANDIDIASIS
  7. CYCLOSERINE [Concomitant]
     Indication: TUBERCULOSIS
  8. ETHAMBUTOL HYDROCHLORIDE [Concomitant]
     Indication: ANTIBIOTIC PROPHYLAXIS
  9. PYRAZINAMIDE [Concomitant]
     Indication: ANTIBIOTIC PROPHYLAXIS
  10. MOXIFLOXACIN [Suspect]
     Indication: TUBERCULOSIS
  11. CLOFAZIMINE [Concomitant]
  12. EFAVIRENZ [Concomitant]
  13. HEPARIN [Concomitant]
  14. LINEZOLID [Concomitant]
     Indication: TUBERCULOSIS
  15. PROTHIONAMIDE [Concomitant]
     Indication: TUBERCULOSIS
  16. TRUVADA [Concomitant]

REACTIONS (2)
  - ARRHYTHMIA [None]
  - AIDS RELATED COMPLICATION [None]
